FAERS Safety Report 17911863 (Version 1)
Quarter: 2020Q2

REPORT INFORMATION
  Report Type: Spontaneous
  Country: GB (occurrence: GB)
  Receive Date: 20200618
  Receipt Date: 20200618
  Transmission Date: 20200714
  Serious: Yes (Other)
  Sender: FDA-Public Use
  Company Number: GB-NEUROCRINE BIOSCIENCES INC.-2020NBI01978

PATIENT
  Age: 52 Year

DRUGS (1)
  1. OPICAPONE [Suspect]
     Active Substance: OPICAPONE
     Indication: PRODUCT USED FOR UNKNOWN INDICATION
     Dosage: UNKNOWN
     Route: 065
     Dates: start: 202005

REACTIONS (3)
  - Bradycardia [Unknown]
  - Agitation [Unknown]
  - Muscle spasms [Unknown]

NARRATIVE: CASE EVENT DATE: 2020
